FAERS Safety Report 20417630 (Version 1)
Quarter: 2022Q1

REPORT INFORMATION
  Report Type: Spontaneous
  Country: US (occurrence: US)
  Receive Date: 20220202
  Receipt Date: 20220202
  Transmission Date: 20220424
  Serious: No
  Sender: FDA-Public Use
  Company Number: US-GLAXOSMITHKLINE-US2022AMR016825

PATIENT
  Age: 14 Year
  Sex: Male

DRUGS (1)
  1. ADVAIR DISKUS [Suspect]
     Active Substance: FLUTICASONE PROPIONATE\SALMETEROL XINAFOATE
     Indication: Asthma
     Dosage: UNK
     Route: 065
     Dates: start: 20220128

REACTIONS (4)
  - Pyrexia [Unknown]
  - Rhinorrhoea [Unknown]
  - Pain [Unknown]
  - Viral infection [Unknown]

NARRATIVE: CASE EVENT DATE: 20220128
